FAERS Safety Report 6161955-0 (Version None)
Quarter: 2009Q2

REPORT INFORMATION
  Report Type: 
  Country: None (occurrence: None)
  Receive Date: 20090417
  Receipt Date: 20090417
  Transmission Date: 20091009
  Serious: Yes (Other)
  Sender: FDA-Public Use
  Company Number: None

PATIENT
  Age: 31 Year
  Sex: Female
  Weight: 53.978 kg

DRUGS (2)
  1. LUPRON DEPOT-3 [Suspect]
     Indication: ENDOMETRIOSIS
     Dosage: 3 MONTH 11.25 MG 1 SHOT IM
     Route: 030
     Dates: start: 20090331
  2. LUPRON DEPOT-3 [Suspect]
     Indication: OVARIAN CYST
     Dosage: 3 MONTH 11.25 MG 1 SHOT IM
     Route: 030
     Dates: start: 20090331

REACTIONS (13)
  - BONE PAIN [None]
  - CONDITION AGGRAVATED [None]
  - DIZZINESS [None]
  - ELECTROCARDIOGRAM ABNORMAL [None]
  - HEADACHE [None]
  - HOT FLUSH [None]
  - INSOMNIA [None]
  - MYALGIA [None]
  - SINUSITIS [None]
  - TEMPOROMANDIBULAR JOINT SYNDROME [None]
  - TINEA VERSICOLOUR [None]
  - VENTRICULAR EXTRASYSTOLES [None]
  - VISION BLURRED [None]
